FAERS Safety Report 13303022 (Version 1)
Quarter: 2017Q1

REPORT INFORMATION
  Report Type: Other
  Country: US (occurrence: US)
  Receive Date: 20170307
  Receipt Date: 20170307
  Transmission Date: 20170428
  Serious: Yes (Other)
  Sender: FDA-Public Use
  Company Number: US-SHIRE-US201701181

PATIENT
  Age: 61 Year
  Sex: Female

DRUGS (4)
  1. NATPARA (PARATHYROID HORMONE) [Suspect]
     Active Substance: PARATHYROID HORMONE
     Indication: HYPOPARATHYROIDISM
     Dosage: UNK UNK, UNKNOWN
     Route: 058
  2. NATPARA (PARATHYROID HORMONE) [Suspect]
     Active Substance: PARATHYROID HORMONE
     Indication: HYPOPARATHYROIDISM
     Dosage: UNK UNK, UNKNOWN
     Route: 058
  3. NATPARA (PARATHYROID HORMONE) [Suspect]
     Active Substance: PARATHYROID HORMONE
     Indication: HYPOPARATHYROIDISM
     Dosage: 100 ?G, 1X/DAY:QD
     Route: 058
     Dates: start: 20160711
  4. CALCIUM [Concomitant]
     Active Substance: CALCIUM
     Indication: SUPPLEMENTATION THERAPY
     Dosage: UNK, UNKNOWN
     Route: 065

REACTIONS (23)
  - Migraine [Unknown]
  - Therapeutic response unexpected [Unknown]
  - Blood cortisol abnormal [Unknown]
  - Palpitations [Recovered/Resolved]
  - Nausea [Not Recovered/Not Resolved]
  - Back pain [Unknown]
  - Drug effect decreased [Unknown]
  - Inappropriate schedule of drug administration [Unknown]
  - Seizure [Unknown]
  - Alcohol intolerance [Unknown]
  - Gait disturbance [Unknown]
  - Arthropathy [Unknown]
  - Pain [Unknown]
  - Nephrolithiasis [Unknown]
  - Malaise [Unknown]
  - Aphasia [Unknown]
  - Product quality issue [Recovered/Resolved]
  - Asthenia [Unknown]
  - Dizziness [Unknown]
  - Stress [Unknown]
  - Feeling drunk [Unknown]
  - Fatigue [Not Recovered/Not Resolved]
  - Hypocalcaemia [Unknown]

NARRATIVE: CASE EVENT DATE: 201701
